FAERS Safety Report 7773106-7 (Version None)
Quarter: 2011Q3

REPORT INFORMATION
  Report Type: 
  Country: None (occurrence: None)
  Receive Date: 20110922
  Receipt Date: 20100826
  Transmission Date: 20111222
  Serious: No
  Sender: FDA-Public Use
  Company Number: US-ASTRAZENECA-2007UW25159

PATIENT
  Age: 12 Year
  Sex: Female
  Weight: 69.4 kg

DRUGS (15)
  1. FERROUS SULFATE TAB [Concomitant]
     Dates: start: 20050616
  2. ZOLOFT [Concomitant]
     Route: 048
     Dates: start: 20050317
  3. BACTRIM DS [Concomitant]
     Dosage: 1 PO BID, 800-160 MG
     Route: 048
     Dates: start: 20050317
  4. SEROQUEL [Suspect]
     Indication: SLEEP DISORDER
     Route: 048
     Dates: start: 19980101, end: 20050101
  5. ALDOMET [Concomitant]
     Dates: start: 20050317
  6. RISPERDAL [Concomitant]
     Indication: SLEEP DISORDER
     Dosage: 2000
     Dates: start: 20020101
  7. SEROQUEL [Suspect]
     Route: 048
     Dates: start: 19990101, end: 20000101
  8. VASERETIC [Concomitant]
     Dosage: 5/12.5 MG,DAILY
     Dates: start: 20050616
  9. ZYPREXA [Concomitant]
     Indication: DEPRESSION
     Dosage: 7.5MG--60 MG
     Route: 048
     Dates: start: 19990101, end: 20000101
  10. HALDOL [Concomitant]
  11. SEROQUEL [Suspect]
     Route: 048
     Dates: start: 19990101, end: 20000101
  12. ZYPREXA [Concomitant]
     Indication: SLEEP DISORDER
     Dosage: 7.5MG--60 MG
     Route: 048
     Dates: start: 19990101, end: 20000101
  13. SEROQUEL [Suspect]
     Indication: DEPRESSION
     Route: 048
     Dates: start: 19980101, end: 20050101
  14. HUMULIN R [Concomitant]
     Dosage: 70/30, 60 UNITS-140 UNITS
     Route: 058
     Dates: start: 20010414
  15. RISPERDAL [Concomitant]
     Indication: DEPRESSION
     Dosage: 2000
     Dates: start: 20020101

REACTIONS (10)
  - DIABETES MELLITUS INADEQUATE CONTROL [None]
  - TYPE 2 DIABETES MELLITUS [None]
  - HYPERLIPIDAEMIA [None]
  - VERTIGO [None]
  - HEADACHE [None]
  - DIABETIC COMPLICATION [None]
  - RENAL FAILURE [None]
  - BLOOD CHOLESTEROL INCREASED [None]
  - TYPE 1 DIABETES MELLITUS [None]
  - CARDIAC DISORDER [None]
